FAERS Safety Report 7892516 (Version 5)
Quarter: 2012Q4

REPORT INFORMATION
  Report Type: 
  Country: US (occurrence: US)
  Receive Date: 20110311
  Receipt Date: 20120911
  Transmission Date: 20130627
  Serious: Yes (Hospitalization, Other)
  Sender: FDA-Public Use
  Company Number: US-009507513-2010SP062558

PATIENT

DRUGS (1)
  1. NUVARING [Suspect]
     Indication: CONTRACEPTION
     Dates: start: 200812, end: 200812

REACTIONS (15)
  - Hypercoagulation [Unknown]
  - Heart rate irregular [Unknown]
  - Left ventricular dysfunction [Unknown]
  - Pulmonary embolism [Unknown]
  - Migraine [Unknown]
  - Deep vein thrombosis [Unknown]
  - Muscle strain [Unknown]
  - Road traffic accident [Unknown]
  - Muscle strain [Unknown]
  - Blood triglycerides increased [Not Recovered/Not Resolved]
  - Insulin-requiring type 2 diabetes mellitus [Not Recovered/Not Resolved]
  - Abdominal pain [Unknown]
  - Blood cholesterol increased [Not Recovered/Not Resolved]
  - Hyperlipidaemia [Not Recovered/Not Resolved]
  - Cholelithiasis [Unknown]
